FAERS Safety Report 9221098 (Version 1)
Quarter: 2013Q2

REPORT INFORMATION
  Report Type: Spontaneous
  Country: US (occurrence: US)
  Receive Date: 20130409
  Receipt Date: 20130409
  Transmission Date: 20140414
  Serious: Yes (Other)
  Sender: FDA-Public Use
  Company Number: CHPA2013US005822

PATIENT
  Age: 70 Year
  Sex: Female

DRUGS (5)
  1. EXCEDRIN EXTRA STRENGTH [Suspect]
     Indication: BACK PAIN
     Dosage: 1 UNK, UNK
     Route: 048
     Dates: end: 2012
  2. EXCEDRIN EXTRA STRENGTH [Suspect]
     Indication: HEADACHE
  3. EXCEDRIN EXTRA STRENGTH [Suspect]
     Indication: ARTHRITIS
  4. MOTRIN [Concomitant]
     Dosage: 0.5 UNK, UNK
  5. EXCEDRIN P.M. [Concomitant]
     Indication: INSOMNIA
     Dosage: 0.125 DF, UNK
     Route: 048

REACTIONS (5)
  - Ulcer [Recovered/Resolved]
  - Arthritis [Not Recovered/Not Resolved]
  - Off label use [Unknown]
  - Underdose [Unknown]
  - Incorrect drug administration duration [Unknown]
